FAERS Safety Report 6396122-9 (Version None)
Quarter: 2009Q4

REPORT INFORMATION
  Report Type: 
  Country: None (occurrence: None)
  Receive Date: 20091009
  Receipt Date: 20091002
  Transmission Date: 20100525
  Serious: Yes (Other)
  Sender: FDA-Public Use
  Company Number: US-GENENTECH-291635

PATIENT
  Sex: Female

DRUGS (3)
  1. BEVACIZUMAB [Suspect]
     Indication: METASTATIC MALIGNANT MELANOMA
     Dosage: 15 MG/KG, Q14D
     Route: 042
     Dates: start: 20090421
  2. INTERFERON ALFA 2A [Suspect]
     Indication: METASTATIC MALIGNANT MELANOMA
     Dosage: 5 MBQ, UNK
     Route: 058
     Dates: start: 20090421
  3. INTERFERON ALFA 2A [Suspect]
     Dosage: 10 UNK, UNK
     Route: 058

REACTIONS (11)
  - DECREASED APPETITE [None]
  - DIARRHOEA [None]
  - ELECTROCARDIOGRAM QT PROLONGED [None]
  - HAEMOGLOBIN DECREASED [None]
  - HYPOCALCAEMIA [None]
  - HYPOPHOSPHATAEMIA [None]
  - LYMPHOPENIA [None]
  - MYOCARDIAL ISCHAEMIA [None]
  - SINUS TACHYCARDIA [None]
  - TROPONIN I INCREASED [None]
  - WHITE BLOOD CELL COUNT DECREASED [None]
